FAERS Safety Report 8104015-1 (Version None)
Quarter: 2012Q1

REPORT INFORMATION
  Report Type: 
  Country: None (occurrence: None)
  Receive Date: 20120130
  Receipt Date: 20120119
  Transmission Date: 20120608
  Serious: Yes (Other)
  Sender: FDA-Public Use
  Company Number: 1000026545

PATIENT
  Age: 90 Year
  Sex: Female
  Weight: 70 kg

DRUGS (11)
  1. FLUIDASA (MEPIRAMINA ACEFILINATO) [Suspect]
     Indication: RESPIRATORY TRACT INFECTION
     Dosage: 30 ML (30 ML,1 IN 1 D),ORAL
     Route: 048
     Dates: start: 20111105, end: 20111107
  2. TEBETANE COMPUESTO (ALANINE, GLUTAMIC ACID, GLYCINE, PRUNUS AFRICANA) [Suspect]
     Indication: URINARY INCONTINENCE
     Dosage: 3 DF (3 DOSAGE FORMS,1 IN 1 D),ORAL
     Route: 048
     Dates: start: 20080101
  3. RABEPRAZOLE SODIUM [Concomitant]
  4. FLUIDASA (MEPIRAMINA ACEFILINATO) [Suspect]
     Indication: RESPIRATORY TRACT INFECTION
  5. LEKOVIT CA (CALCIUM CARBONATE, COLECALCIFEROL) [Concomitant]
  6. ESCITALOPRAM OXALATE [Suspect]
     Indication: DEPRESSION
     Dosage: 15 MG (15 MG,1 IN 1 D),ORAL
     Route: 048
     Dates: start: 20060101
  7. BONIVA [Concomitant]
  8. FERROUS SULFATE TAB [Concomitant]
  9. MEMANTINE HCL [Suspect]
     Indication: DEMENTIA ALZHEIMER'S TYPE
     Dosage: 20 MG (20 MG,1 IN 1 D),ORAL
     Route: 048
     Dates: start: 20090101
  10. PRITOR (TELMISARTAN) [Concomitant]
  11. SUTRIL NEO (TORASEMIDE) [Concomitant]

REACTIONS (3)
  - TREMOR [None]
  - DELIRIUM [None]
  - DRUG INTERACTION [None]
